FAERS Safety Report 9501772 (Version 1)
Quarter: 2013Q1

REPORT INFORMATION
  Report Type: Spontaneous
  Country: US (occurrence: None)
  Receive Date: 20130107
  Receipt Date: 20130107
  Transmission Date: 20140127
  Serious: No
  Sender: FDA-Public Use
  Company Number: PHEH2012US017838

PATIENT
  Age: 57 Year
  Sex: Female

DRUGS (10)
  1. GILENYA (FTY) CAPSULE, 0.5MG [Suspect]
     Indication: MULTIPLE SCLEROSIS
     Route: 048
     Dates: start: 20120904
  2. SYNTHROID (LEVOTHYROXINE SODIUM) 50UG [Concomitant]
  3. LEXAPRO (ESCITALOPRAM OXALATE) 10MG [Concomitant]
  4. NYSTATIN (NYSTATIN) 6ML [Concomitant]
  5. TIZANIDINE (TIZANIDINE) 4MG [Concomitant]
  6. OXYBUTNIN (OXYBUTYNIN) 5MG [Concomitant]
  7. SODIUM FLUORIDE (SODIUM FLUORIDE) 1.1% [Concomitant]
  8. TRAMADOL (TRAMADOL) [Concomitant]
  9. NORCO (HYDROCODONE BITARTRATE, PARACETAMOL) [Concomitant]
  10. TEMAZEPAM (TEMAZEPAM) 15MG [Concomitant]

REACTIONS (6)
  - Confusional state [None]
  - Influenza like illness [None]
  - Lethargy [None]
  - Chest discomfort [None]
  - Abdominal pain [None]
  - Back pain [None]
